FAERS Safety Report 10396558 (Version 1)
Quarter: 2014Q1

REPORT INFORMATION
  Report Type: Spontaneous
  Country: US (occurrence: None)
  Receive Date: 20130815
  Receipt Date: 20130815
  Transmission Date: 20141002
  Serious: Yes (Other)
  Sender: FDA-Public Use
  Company Number: ADR-2013-00706

PATIENT
  Age: 52 Year
  Sex: Male

DRUGS (1)
  1. LIORESAL INTRATHECAL (BACLOFEN INJECTION) 2000 MCG/ML [Suspect]

REACTIONS (5)
  - Muscle spasticity [None]
  - Pain [None]
  - No therapeutic response [None]
  - Drug withdrawal syndrome [None]
  - Implant site scar [None]
